FAERS Safety Report 23703306 (Version 2)
Quarter: 2024Q2

REPORT INFORMATION
  Report Type: Spontaneous
  Country: US (occurrence: US)
  Receive Date: 20240403
  Receipt Date: 20240409
  Transmission Date: 20240716
  Serious: Yes (Hospitalization)
  Sender: FDA-Public Use
  Company Number: US-SA-SAC20240328001244

PATIENT

DRUGS (1)
  1. LARONIDASE [Suspect]
     Active Substance: LARONIDASE
     Indication: Mucopolysaccharidosis I
     Dosage: 69.6 (UNITS NOT PROVIDED),QOW
     Route: 042
     Dates: start: 20050728

REACTIONS (5)
  - Hospitalisation [Unknown]
  - Fluid retention [Unknown]
  - Weight abnormal [Unknown]
  - Wheelchair user [Not Recovered/Not Resolved]
  - Inappropriate schedule of product administration [Unknown]

NARRATIVE: CASE EVENT DATE: 20050728
